FAERS Safety Report 21185256 (Version 1)
Quarter: 2022Q3

REPORT INFORMATION
  Report Type: Spontaneous
  Country: DE (occurrence: DE)
  Receive Date: 20220808
  Receipt Date: 20220808
  Transmission Date: 20221027
  Serious: Yes (Life-Threatening, Hospitalization, Other)
  Sender: FDA-Public Use
  Company Number: None

PATIENT
  Age: 91 Year
  Sex: Female

DRUGS (10)
  1. ALENDRONATE SODIUM [Suspect]
     Active Substance: ALENDRONATE SODIUM
     Indication: Osteoporosis
     Dosage: 70 MILLIGRAM
     Route: 048
  2. METHIMAZOLE [Concomitant]
     Active Substance: METHIMAZOLE
     Dosage: 1-0-0
  3. VITAMIN B12 [Concomitant]
     Active Substance: CYANOCOBALAMIN
     Dosage: 3X WEEKLY
  4. SODIUM PERCHLORATE [Concomitant]
     Active Substance: SODIUM PERCHLORATE
     Dosage: 1-1-1
  5. RISPERIDONE [Concomitant]
     Active Substance: RISPERIDONE
     Dosage: 1-0-1
  6. POLYETHYLENE GLYCOLS [Concomitant]
     Active Substance: POLYETHYLENE GLYCOLS
     Dosage: 1-0-0
  7. FENTANYL TTS SANDOZ [Concomitant]
     Indication: Spinal fracture
     Dosage: UNK
  8. FENTANYL TTS SANDOZ [Concomitant]
     Indication: Back pain
  9. BISOPROLOL [Concomitant]
     Active Substance: BISOPROLOL
     Dosage: 1-0-1
  10. FOLIC ACID [Concomitant]
     Active Substance: FOLIC ACID
     Dosage: 5MG/D

REACTIONS (4)
  - Pneumomediastinum [Not Recovered/Not Resolved]
  - Pneumothorax [Not Recovered/Not Resolved]
  - Foreign body in throat [Not Recovered/Not Resolved]
  - Oesophageal perforation [Not Recovered/Not Resolved]

NARRATIVE: CASE EVENT DATE: 20220701
